FAERS Safety Report 23429737 (Version 2)
Quarter: 2024Q1

REPORT INFORMATION
  Report Type: Report from Study
  Country: IE (occurrence: IE)
  Receive Date: 20240122
  Receipt Date: 20240125
  Transmission Date: 20240409
  Serious: Yes (Other)
  Sender: FDA-Public Use
  Company Number: IE-Merck Healthcare KGaA-2024001809

PATIENT
  Age: 39 Year
  Sex: Female

DRUGS (3)
  1. MAVENCLAD [Suspect]
     Active Substance: CLADRIBINE
     Indication: Relapsing-remitting multiple sclerosis
     Dosage: YEAR ONE WEEK ONE THERAPY AT 2 TABLETS ON DAY 1 TO 2 AND 1 TABLET ON DAYS 3 TO 5
     Route: 048
     Dates: start: 20221219
  2. MAVENCLAD [Suspect]
     Active Substance: CLADRIBINE
     Dosage: YEAR ONE WEEK FIVE THERAPY AT 2 TABLETS ON DAY 1 TO 2 AND 1 TABLET ON DAYS 3 TO 5
     Route: 048
     Dates: start: 20230109
  3. MAVENCLAD [Suspect]
     Active Substance: CLADRIBINE
     Dosage: YEAR TWO WEEK ONE THERAPY AT 2 TABLETS ON DAY 1 TO 2 AND 1 TABLET ON DAYS 3 TO 5
     Route: 048
     Dates: start: 20231219

REACTIONS (6)
  - Cardiac flutter [Recovering/Resolving]
  - Oedema [Not Recovered/Not Resolved]
  - Chest pain [Recovering/Resolving]
  - Gastrooesophageal reflux disease [Recovering/Resolving]
  - Viral infection [Recovering/Resolving]
  - Musculoskeletal chest pain [Recovering/Resolving]

NARRATIVE: CASE EVENT DATE: 20231226
